FAERS Safety Report 6369132-5 (Version None)
Quarter: 2009Q3

REPORT INFORMATION
  Report Type: 
  Country: None (occurrence: None)
  Receive Date: 20090922
  Receipt Date: 20090811
  Transmission Date: 20100115
  Serious: No
  Sender: FDA-Public Use
  Company Number: US-ALLERGAN-0910229US

PATIENT
  Age: 87 Year
  Sex: Male

DRUGS (10)
  1. AZELEX [Suspect]
     Indication: ROSACEA
     Dosage: UNK, UNKNOWN
     Route: 061
     Dates: start: 20090515, end: 20090731
  2. AZELEX [Suspect]
     Dosage: UNK, UNKNOWN
     Route: 061
  3. ALPHAGAN P [Concomitant]
     Dosage: 1 GTT, BID
     Route: 047
  4. LUMIGAN [Concomitant]
     Dosage: UNK
     Route: 047
  5. FUROSEMIDE [Concomitant]
     Indication: DIURETIC THERAPY
     Dosage: 40 MG, QAM
  6. HYDROXYZINE [Concomitant]
     Indication: PRURITUS
     Dosage: 10 MG, BID
  7. CRESTOR [Concomitant]
     Indication: CARDIAC DISORDER
     Dosage: 10 MG, QD
  8. BENICAR [Concomitant]
     Indication: BLOOD PRESSURE
     Dosage: 20 MG, QD
  9. ASPIRIN [Concomitant]
     Indication: CARDIAC DISORDER
     Dosage: 325 MG, UNK
  10. CLARITIN [Concomitant]
     Indication: HYPERSENSITIVITY

REACTIONS (2)
  - PRURITUS [None]
  - SECRETION DISCHARGE [None]
